FAERS Safety Report 20360820 (Version 43)
Quarter: 2024Q4

REPORT INFORMATION
  Report Type: Report from Study
  Country: IE (occurrence: IE)
  Receive Date: 20220121
  Receipt Date: 20241011
  Transmission Date: 20250115
  Serious: Yes (Hospitalization)
  Sender: ABBVIE
  Company Number: IE-ABBVIE-22K-229-4219321-00

PATIENT
  Age: 64 Year
  Sex: Female

DRUGS (36)
  1. CARBIDOPA\LEVODOPA [Suspect]
     Active Substance: CARBIDOPA\LEVODOPA
     Indication: Parkinson^s disease
     Dosage: CONTINUOUS RATE 2.2ML/HR?FREQUENCY TEXT: CONTINUOUS
     Route: 050
     Dates: start: 202406, end: 202406
  2. CARBIDOPA\LEVODOPA [Suspect]
     Active Substance: CARBIDOPA\LEVODOPA
     Dosage: MORNING DOSE 5.2ML. CONTINUOUS RATE 2.4ML/HR?FREQUENCY TEXT: CONTINUOUS
     Route: 050
     Dates: start: 202405, end: 20240605
  3. CARBIDOPA\LEVODOPA [Suspect]
     Active Substance: CARBIDOPA\LEVODOPA
     Dosage: CONTINUOUS RATE 2.3ML/HR,?FREQUENCY TEXT: CONTINUOUS
     Route: 050
     Dates: start: 20240605, end: 20240605
  4. CARBIDOPA\LEVODOPA [Suspect]
     Active Substance: CARBIDOPA\LEVODOPA
     Dosage: MORNING DOSE 5.2ML. CONTINUOUS RATE 2.4ML/HR?FREQUENCY TEXT: CONTINUOUS
     Route: 050
     Dates: start: 202405, end: 202405
  5. CARBIDOPA\LEVODOPA [Suspect]
     Active Substance: CARBIDOPA\LEVODOPA
     Route: 050
  6. CARBIDOPA\LEVODOPA [Suspect]
     Active Substance: CARBIDOPA\LEVODOPA
     Dosage: MORNING DOSE 5.4ML?FREQUENCY TEXT: CONTINUOUS
     Route: 050
     Dates: start: 202405, end: 202405
  7. CARBIDOPA\LEVODOPA [Suspect]
     Active Substance: CARBIDOPA\LEVODOPA
     Dosage: REDUCED MORNING DOSE TO 5.1ML LAST ADMIN DATE JUN 2024?FREQUENCY TEXT: CONTINUOUS
     Route: 050
     Dates: start: 20240607
  8. CARBIDOPA\LEVODOPA [Suspect]
     Active Substance: CARBIDOPA\LEVODOPA
     Dosage: 1 CASSETTE  ?FREQUENCY TEXT: CONTINUOUS
     Route: 050
     Dates: start: 20181001
  9. CARBIDOPA\LEVODOPA [Suspect]
     Active Substance: CARBIDOPA\LEVODOPA
     Dosage: CONTINUOUS RATE 2.2ML/HR?FREQUENCY TEXT: CONTINUOUS
     Route: 050
     Dates: start: 20240821
  10. CARBIDOPA\LEVODOPA [Suspect]
     Active Substance: CARBIDOPA\LEVODOPA
     Dosage: CONTINUOUS RATE 2.6ML/HR?FREQUENCY TEXT: CONTINUOUS
     Route: 050
     Dates: start: 202112, end: 202112
  11. CARBIDOPA\LEVODOPA [Suspect]
     Active Substance: CARBIDOPA\LEVODOPA
     Dosage: CONTINUOUS RATE 2.2ML/HR?FREQUENCY TEXT: CONTINUOUS
     Route: 050
     Dates: start: 20240605, end: 20240607
  12. CARBIDOPA\LEVODOPA [Suspect]
     Active Substance: CARBIDOPA\LEVODOPA
     Dosage: CONTINUOUS RATE TO 2.6ML/HR?FREQUENCY TEXT: CONTINUOUS
     Route: 050
     Dates: start: 20220128, end: 202202
  13. CARBIDOPA\LEVODOPA [Suspect]
     Active Substance: CARBIDOPA\LEVODOPA
     Dosage: MORNING DOSE 5.3ML/FIRST?FREQUENCY TEXT: CONTINUOUS
     Route: 050
     Dates: start: 2022, end: 20220114
  14. CARBIDOPA\LEVODOPA [Suspect]
     Active Substance: CARBIDOPA\LEVODOPA
     Route: 050
  15. CARBIDOPA\LEVODOPA [Suspect]
     Active Substance: CARBIDOPA\LEVODOPA
     Dosage: CONTINUOUS DOSE 2.4ML/HR; EXTRA DOSE 0.4ML?FREQUENCY TEXT: CONTINUOUS
     Route: 050
     Dates: start: 202204, end: 202204
  16. CARBIDOPA\LEVODOPA [Suspect]
     Active Substance: CARBIDOPA\LEVODOPA
     Dosage: MORNING DOSE 5.4ML,?LAST ADMIN : 2022?FREQUENCY TEXT: CONTINUOUS
     Route: 050
     Dates: start: 20220513
  17. CARBIDOPA\LEVODOPA [Suspect]
     Active Substance: CARBIDOPA\LEVODOPA
     Dosage: CONTINUOUS DOSE TO 2.5ML/HR; EXTRA DOSE OF UP TO TO 0.6ML?FREQUENCY TEXT: CONTINUOUS
     Route: 050
     Dates: start: 202204, end: 20220513
  18. CARBIDOPA\LEVODOPA [Suspect]
     Active Substance: CARBIDOPA\LEVODOPA
     Dosage: CONTINUOUS RATE 2.4ML/HR?FREQUENCY TEXT: CONTINUOUS
     Route: 050
     Dates: start: 202203, end: 20220304
  19. CARBIDOPA\LEVODOPA [Suspect]
     Active Substance: CARBIDOPA\LEVODOPA
     Dosage: CONTINUOUS RATE 2.6ML/HR; EXTRA DOSE OF 0.1ML?FREQUENCY TEXT: CONTINUOUS
     Route: 050
     Dates: start: 20220114, end: 20220114
  20. CARBIDOPA\LEVODOPA [Suspect]
     Active Substance: CARBIDOPA\LEVODOPA
     Dosage: CONTINUOUS RATE 2.4ML/HR; EXTRA DOSE 0.4ML?FREQUENCY TEXT: CONTINUOUS
     Route: 050
     Dates: start: 202202, end: 202202
  21. CARBIDOPA\LEVODOPA [Suspect]
     Active Substance: CARBIDOPA\LEVODOPA
     Dosage: CONTINUOUS RATE 2.4ML/HR
     Route: 050
  22. CARBIDOPA\LEVODOPA [Suspect]
     Active Substance: CARBIDOPA\LEVODOPA
     Dosage: MONRING DOSE 5.4ML?FREQUENCY TEXT: CONTINUOUS?START AND STOP DATE MAR 2022
     Route: 050
  23. CARBIDOPA\LEVODOPA [Suspect]
     Active Substance: CARBIDOPA\LEVODOPA
     Dosage: CONTINUOUS DOSE 2.3ML/HR; MORNING DOSE 5.5ML/?FREQUENCY TEXT: CONTINUOUS?START DATE MAR 2022
     Route: 050
     Dates: end: 20220304
  24. CARBIDOPA\LEVODOPA [Suspect]
     Active Substance: CARBIDOPA\LEVODOPA
     Dosage: MORNING DOSE TO 5.3ML?FREQUENCY TEXT: CONTINUOUS?START AND STOP DATE MAR 2022
     Route: 050
  25. CARBIDOPA\LEVODOPA [Suspect]
     Active Substance: CARBIDOPA\LEVODOPA
     Dosage: CONTINUOUS DOSE 2.3ML/HR;  MORNING DOSE 5.5ML?LAST ADMIN DATE: MAR 2022?FREQUENCY TEXT: CONTINUOUS
     Route: 050
     Dates: start: 20220304
  26. CARBIDOPA\LEVODOPA [Suspect]
     Active Substance: CARBIDOPA\LEVODOPA
     Dosage: INCREASE OF CONTINUOUS RATE DAILY AT MIDDAY FROM 2.4ML/HR TO 2.5ML/HR?FREQUENCY TEXT: CONTINUOUS?...
     Route: 050
     Dates: end: 20240821
  27. CARBIDOPA\LEVODOPA [Suspect]
     Active Substance: CARBIDOPA\LEVODOPA
     Dosage: CONTINUOUS RATE 2.4ML/HR (AFTERNOON)?FREQUENCY TEXT: CONTINUOUS
     Route: 050
     Dates: start: 202406, end: 202406
  28. CARBIDOPA\LEVODOPA [Suspect]
     Active Substance: CARBIDOPA\LEVODOPA
     Dosage: MORNING DOSE 5.2ML?FREQUENCY TEXT: CONTINUOUS?START DATE MAR 2022
     Route: 050
     Dates: end: 202204
  29. CARBIDOPA\LEVODOPA [Suspect]
     Active Substance: CARBIDOPA\LEVODOPA
     Dosage: 1 CASSETTE/THERAY?FREQUENCY TEXT: CONTINUOUS
     Route: 050
     Dates: start: 2024, end: 202405
  30. CITALOPRAM [Concomitant]
     Active Substance: CITALOPRAM
     Indication: Product used for unknown indication
  31. SINEMET CR [Concomitant]
     Active Substance: CARBIDOPA\LEVODOPA
     Indication: Product used for unknown indication
     Dosage: HALF
  32. MOVICOL [Concomitant]
     Active Substance: POLYETHYLENE GLYCOL 3350\POTASSIUM CHLORIDE\SODIUM BICARBONATE\SODIUM CHLORIDE
     Indication: Product used for unknown indication
     Dosage: SACHET/13.8 MG
  33. MIRABEGRON [Concomitant]
     Active Substance: MIRABEGRON
     Indication: Product used for unknown indication
  34. ZOLPIDEM TARTRATE [Concomitant]
     Active Substance: ZOLPIDEM TARTRATE
     Indication: Product used for unknown indication
  35. DIAZEPAM [Concomitant]
     Active Substance: DIAZEPAM
     Indication: Product used for unknown indication
  36. VENLAFAXINE [Concomitant]
     Active Substance: VENLAFAXINE HYDROCHLORIDE
     Indication: Product used for unknown indication
     Dosage: VENLAFLEX

REACTIONS (43)
  - General symptom [Recovered/Resolved]
  - On and off phenomenon [Not Recovered/Not Resolved]
  - Dyskinesia [Not Recovered/Not Resolved]
  - Incorrect dose administered [Not Recovered/Not Resolved]
  - Incorrect dose administered [Recovered/Resolved]
  - Mobility decreased [Not Recovered/Not Resolved]
  - Device leakage [Recovered/Resolved]
  - Musculoskeletal stiffness [Not Recovered/Not Resolved]
  - Muscle spasms [Recovered/Resolved]
  - Intentional device misuse [Recovered/Resolved]
  - Drug ineffective [Not Recovered/Not Resolved]
  - Patient-device incompatibility [Unknown]
  - Dizziness [Not Recovered/Not Resolved]
  - Feeling abnormal [Recovered/Resolved]
  - Limb discomfort [Recovered/Resolved]
  - Bradykinesia [Not Recovered/Not Resolved]
  - Paraesthesia [Recovered/Resolved]
  - Device mechanical issue [Not Recovered/Not Resolved]
  - Stoma site discharge [Recovered/Resolved]
  - Speech disorder [Not Recovered/Not Resolved]
  - Therapeutic product effect incomplete [Not Recovered/Not Resolved]
  - Device dislocation [Recovered/Resolved]
  - Gait disturbance [Recovered/Resolved]
  - Device connection issue [Recovered/Resolved]
  - Therapeutic product effect incomplete [Recovered/Resolved]
  - On and off phenomenon [Recovered/Resolved]
  - Drug tolerance decreased [Recovered/Resolved]
  - Therapeutic product effect delayed [Recovered/Resolved]
  - Device leakage [Recovered/Resolved]
  - Off label use [Recovered/Resolved]
  - Unevaluable event [Recovered/Resolved]
  - Device occlusion [Recovered/Resolved]
  - Device issue [Recovered/Resolved]
  - Stoma site reaction [Recovered/Resolved]
  - Muscle strain [Not Recovered/Not Resolved]
  - General symptom [Recovered/Resolved]
  - Emotional distress [Not Recovered/Not Resolved]
  - Tremor [Recovered/Resolved]
  - Mobility decreased [Recovered/Resolved]
  - Muscle rigidity [Recovered/Resolved]
  - Pain [Recovered/Resolved]
  - Tremor [Not Recovered/Not Resolved]
  - Device occlusion [Recovered/Resolved]

NARRATIVE: CASE EVENT DATE: 20211225
